FAERS Safety Report 12615353 (Version 1)
Quarter: 2016Q3

REPORT INFORMATION
  Report Type: Other
  Country: CA (occurrence: CA)
  Receive Date: 20160802
  Receipt Date: 20160802
  Transmission Date: 20161109
  Serious: Yes (Other)
  Sender: FDA-Public Use
  Company Number: CA-ECLAT PHARMACEUTICALS-2016ECL00014

PATIENT
  Sex: Female

DRUGS (7)
  1. ASA [Concomitant]
     Active Substance: ASPIRIN
  2. NORVASC [Concomitant]
     Active Substance: AMLODIPINE BESYLATE
  3. ATACAND [Concomitant]
     Active Substance: CANDESARTAN CILEXETIL
  4. HCTZ [Concomitant]
     Active Substance: HYDROCHLOROTHIAZIDE
  5. ATIVAN [Concomitant]
     Active Substance: LORAZEPAM
  6. PARIET [Suspect]
     Active Substance: RABEPRAZOLE SODIUM
     Dosage: UNK, 1X/DAY
     Route: 048
  7. OMEPRAZOLE. [Suspect]
     Active Substance: OMEPRAZOLE
     Dosage: 20 MG, 1X/DAY
     Route: 048

REACTIONS (5)
  - Tongue ulceration [Recovered/Resolved]
  - Glossitis [Recovered/Resolved]
  - Gastrointestinal erosion [Recovered/Resolved]
  - Gingival ulceration [Recovered/Resolved]
  - Hiatus hernia [Recovered/Resolved]
